FAERS Safety Report 18383007 (Version 1)
Quarter: 2020Q4

REPORT INFORMATION
  Report Type: Spontaneous
  Country: US (occurrence: US)
  Receive Date: 20201013
  Receipt Date: 20201013
  Transmission Date: 20210114
  Serious: No
  Sender: FDA-Public Use
  Company Number: None

PATIENT
  Sex: Female

DRUGS (1)
  1. ERTAPENEM SODIUM [Suspect]
     Active Substance: ERTAPENEM SODIUM
     Indication: INFECTION
     Dosage: ?          OTHER FREQUENCY:EVERY 24 HOURS;?
     Route: 042
     Dates: start: 20200910, end: 20200913

REACTIONS (2)
  - Vomiting [None]
  - Diarrhoea [None]
